FAERS Safety Report 5106533-7 (Version None)
Quarter: 2006Q3

REPORT INFORMATION
  Report Type: 
  Country: None (occurrence: None)
  Receive Date: 20060918
  Receipt Date: 20060912
  Transmission Date: 20061208
  Serious: Yes (Hospitalization)
  Sender: FDA-Public Use
  Company Number: US-BRISTOL-MYERS SQUIBB COMPANY-13507124

PATIENT
  Age: 70 Year
  Sex: Female
  Weight: 58 kg

DRUGS (1)
  1. COUMADIN [Suspect]
     Indication: MITRAL VALVE REPLACEMENT
     Dosage: WARFARIN SODIUM 3MG DAILY SUN,TUE,TH,FRI,SAT + 1.5MG DAILY MON + WED

REACTIONS (3)
  - HAEMORRHAGE [None]
  - LOSS OF CONSCIOUSNESS [None]
  - PNEUMONIA [None]
